FAERS Safety Report 17026816 (Version 3)
Quarter: 2021Q3

REPORT INFORMATION
  Report Type: Spontaneous
  Country: CN (occurrence: CN)
  Receive Date: 20191113
  Receipt Date: 20210709
  Transmission Date: 20211014
  Serious: Yes (Hospitalization)
  Sender: FDA-Public Use
  Company Number: CN-PFIZER INC-2019483121

PATIENT
  Age: 40 Year
  Sex: Male
  Weight: 65 kg

DRUGS (10)
  1. MEROPENEM. [Suspect]
     Active Substance: MEROPENEM
     Indication: EVIDENCE BASED TREATMENT
  2. TIGECYCLINE. [Concomitant]
     Active Substance: TIGECYCLINE
     Dosage: 0.5 G, 3X/DAY (APPLIED IN THE SAME DOSAGE AS PREVIOUSLY)
     Route: 042
  3. VITAMIN K1 [Concomitant]
     Active Substance: PHYTONADIONE
     Dosage: 10 MG, UNK (DURING THE PROCEDURE AND CONTINUED IN THE FOLLOWING 5 DAYS)
     Route: 040
  4. VITAMIN K1 [Concomitant]
     Active Substance: PHYTONADIONE
     Dosage: 20 MG, DAILY,INCREASED
     Route: 040
  5. FOSFOMYCIN SODIUM [Concomitant]
     Active Substance: FOSFOMYCIN SODIUM
     Dosage: 4.0 G, 3X/DAY, APPLIED IN THE SAME DOSAGE AS PREVIOUSLY
     Route: 042
  6. FOSFOMYCIN SODIUM [Concomitant]
     Active Substance: FOSFOMYCIN SODIUM
     Indication: PNEUMONIA KLEBSIELLA
     Dosage: 4.0 G, 3X/DAY, (STARTED ON PBD 38)
     Route: 042
  7. SILVER SULFADIAZINE. [Concomitant]
     Active Substance: SILVER SULFADIAZINE
     Dosage: UNK
     Route: 061
  8. MEROPENEM. [Suspect]
     Active Substance: MEROPENEM
     Indication: PSEUDOMONAS INFECTION
     Dosage: 1.0 G, 3X/DAY, (APPLIED SINCE PBD 3)
     Route: 042
  9. TIGECYCLINE. [Concomitant]
     Active Substance: TIGECYCLINE
     Indication: PNEUMONIA KLEBSIELLA
     Dosage: 0.5 G, 3X/DAY, (WAS INITIATED ON PBD 13)
     Route: 042
  10. FRESUBIN ORIGINAL [Concomitant]
     Indication: NUTRITIONAL SUPPLEMENTATION
     Dosage: 1000 ML, DAILY, (WAS COMMENCED ON PBD 5VIA GASTROINTESTINAL (GI) TUBE)

REACTIONS (1)
  - Hypocoagulable state [Recovered/Resolved]
